FAERS Safety Report 15460779 (Version 1)
Quarter: 2018Q4

REPORT INFORMATION
  Report Type: Spontaneous
  Country: CL (occurrence: CL)
  Receive Date: 20181003
  Receipt Date: 20181003
  Transmission Date: 20190204
  Serious: Yes (Life-Threatening, Other)
  Sender: FDA-Public Use
  Company Number: CL-009507513-1809CHL012571

PATIENT
  Age: 16 Year
  Sex: Male

DRUGS (11)
  1. CYTARABINE. [Concomitant]
     Active Substance: CYTARABINE
     Indication: ACUTE LYMPHOCYTIC LEUKAEMIA
     Dosage: 75 MG/M2/DAY, FOR 4 DAYS EACH TIME, DAYS 1-4, 8-11, 29-32, 36-39; CYCLICAL
     Route: 042
  2. BETAMETHASONE SODIUM PHOSPHATE [Suspect]
     Active Substance: BETAMETHASONE SODIUM PHOSPHATE
     Indication: ACUTE LYMPHOCYTIC LEUKAEMIA
     Dosage: ON DAYS 1, 8, 15 AND 22; CYCLICAL
     Route: 037
  3. METHOTREXATE. [Suspect]
     Active Substance: METHOTREXATE
     Indication: ACUTE LYMPHOCYTIC LEUKAEMIA
     Dosage: ON DAYS 1, 8, 15 AND 22; CYCLICAL
     Route: 037
  4. CYTARABINE. [Suspect]
     Active Substance: CYTARABINE
     Indication: ACUTE LYMPHOCYTIC LEUKAEMIA
     Dosage: ON DAYS 1, 8, 15 AND 22; CYCLICAL
     Route: 037
  5. CYTARABINE. [Suspect]
     Active Substance: CYTARABINE
     Dosage: IN THE RESCUE THERAPY, THE PATIENT RECEIVED SIX PULSES OF IC; CYCLICAL
     Route: 037
  6. ASPARAGINASE [Concomitant]
     Active Substance: ASPARAGINASE
     Indication: ACUTE LYMPHOCYTIC LEUKAEMIA
     Dosage: 6000 U/M2, DAYS 15, 17, 19 AND 43, 45, 47); CYCLICAL
     Route: 030
  7. METHOTREXATE. [Suspect]
     Active Substance: METHOTREXATE
     Dosage: IN THE RESCUE THERAPY, THE PATIENT RECEIVED SIX PULSES OF IC; CYCLICAL
     Route: 037
  8. VINCRISTINE [Concomitant]
     Active Substance: VINCRISTINE
     Indication: ACUTE LYMPHOCYTIC LEUKAEMIA
     Dosage: 1.5 MG/M2/DAY, (MAX. DOSE 2 MG), DAYS 15, 22, 43 AND 50; CYCLICAL
     Route: 042
  9. BETAMETHASONE SODIUM PHOSPHATE [Suspect]
     Active Substance: BETAMETHASONE SODIUM PHOSPHATE
     Dosage: IN THE RESCUE THERAPY, THE PATIENT RECEIVED SIX PULSES OF IC; CYCLICAL
     Route: 037
  10. MERCAPTOPURINE. [Concomitant]
     Active Substance: MERCAPTOPURINE
     Indication: ACUTE LYMPHOCYTIC LEUKAEMIA
     Dosage: 60 MG/M2/DAY ON DAYS 1-14 AND 29-42; CYCLICAL
     Route: 048
  11. CYCLOPHOSPHAMIDE. [Concomitant]
     Active Substance: CYCLOPHOSPHAMIDE
     Indication: ACUTE LYMPHOCYTIC LEUKAEMIA
     Dosage: 1000 MG/M2/DAY, DAYS 1 AND 29; CYCLICAL
     Route: 042

REACTIONS (5)
  - Myelopathy [Not Recovered/Not Resolved]
  - Hyperreflexia [Not Recovered/Not Resolved]
  - Paraplegia [Not Recovered/Not Resolved]
  - Urinary incontinence [Not Recovered/Not Resolved]
  - Hypoaesthesia [Not Recovered/Not Resolved]
